FAERS Safety Report 8521581-2 (Version None)
Quarter: 2012Q3

REPORT INFORMATION
  Report Type: 
  Country: None (occurrence: None)
  Receive Date: 20120719
  Receipt Date: 20120713
  Transmission Date: 20120928
  Serious: Yes (Death, Hospitalization)
  Sender: FDA-Public Use
  Company Number: PHHY2012DE037737

PATIENT
  Sex: Female
  Weight: 73 kg

DRUGS (12)
  1. TORSEMIDE [Concomitant]
  2. TASIGNA [Suspect]
     Indication: CHRONIC MYELOID LEUKAEMIA
     Dosage: 600 MG, PER DAY
     Route: 048
     Dates: start: 20111215
  3. PLAVIX [Concomitant]
  4. BISOPROLOL FUMARATE [Concomitant]
     Indication: HYPERTENSION
     Dosage: 10 MG, PER DAY
     Route: 048
  5. RAMIPRIL [Concomitant]
  6. RAMIPRIL [Concomitant]
     Indication: HYPERTENSION
     Dosage: 5 MG, PER DAY
     Route: 048
  7. SIMVASTATIN [Concomitant]
  8. ENOXAPARIN SODIUM [Concomitant]
  9. ASS ^CT-ARZNEIMITTEL^ [Concomitant]
     Indication: CORONARY ARTERY DISEASE
     Dosage: 100 MG/ DAY
     Route: 048
  10. ACETYLSALICYLIC ACID SRT [Concomitant]
  11. PANTOPRAZOLE [Concomitant]
  12. DOXACOR [Concomitant]

REACTIONS (7)
  - MYOCARDIAL INFARCTION [None]
  - GENERAL PHYSICAL HEALTH DETERIORATION [None]
  - ANGINA PECTORIS [None]
  - PNEUMONIA [None]
  - TACHYARRHYTHMIA [None]
  - SEPSIS [None]
  - CEREBRAL INFARCTION [None]
